FAERS Safety Report 5988160-2 (Version None)
Quarter: 2008Q4

REPORT INFORMATION
  Report Type: 
  Country: None (occurrence: None)
  Receive Date: 20081208
  Receipt Date: 20081208
  Transmission Date: 20090506
  Serious: Yes (Life-Threatening, Other)
  Sender: FDA-Public Use
  Company Number: None

PATIENT
  Age: 29 Year
  Sex: Female
  Weight: 71.6683 kg

DRUGS (3)
  1. YAZ [Suspect]
     Indication: OVARIAN CYST
     Dosage: 1 PILL DAILY PO
     Route: 048
     Dates: start: 20081108, end: 20081205
  2. YAZ [Suspect]
     Indication: PROPHYLAXIS
     Dosage: 1 PILL DAILY PO
     Route: 048
     Dates: start: 20081108, end: 20081205
  3. .. [Concomitant]

REACTIONS (4)
  - BLINDNESS [None]
  - DYSPNOEA [None]
  - HEADACHE [None]
  - PALPITATIONS [None]
